FAERS Safety Report 5885619-3 (Version None)
Quarter: 2008Q3

REPORT INFORMATION
  Report Type: 
  Country: None (occurrence: None)
  Receive Date: 20080912
  Receipt Date: 20080909
  Transmission Date: 20090109
  Serious: Yes (Disabling)
  Sender: FDA-Public Use
  Company Number: 2008JP001731

PATIENT
  Age: 26 Year
  Sex: Female
  Weight: 55 kg

DRUGS (22)
  1. TACROLIMUS [Suspect]
     Indication: LUPUS NEPHRITIS
     Dosage: SEE IMAGE
     Route: 048
     Dates: start: 20070720, end: 20070729
  2. TACROLIMUS [Suspect]
     Indication: LUPUS NEPHRITIS
     Dosage: SEE IMAGE
     Route: 048
     Dates: start: 20070803, end: 20070816
  3. TACROLIMUS [Suspect]
     Indication: LUPUS NEPHRITIS
     Dosage: SEE IMAGE
     Route: 048
     Dates: start: 20070817, end: 20070920
  4. TACROLIMUS [Suspect]
     Indication: LUPUS NEPHRITIS
     Dosage: SEE IMAGE
     Route: 048
     Dates: start: 20070921, end: 20071018
  5. TACROLIMUS [Suspect]
     Indication: LUPUS NEPHRITIS
     Dosage: SEE IMAGE
     Route: 048
     Dates: start: 20071019
  6. PREDNISOLONE [Suspect]
     Indication: LUPUS NEPHRITIS
     Dosage: 17.5 MG, ORAL; 15 MG, ORAL; 12.5 MG, ORAL
     Route: 048
     Dates: end: 20070817
  7. PREDNISOLONE [Suspect]
     Indication: LUPUS NEPHRITIS
     Dosage: 17.5 MG, ORAL; 15 MG, ORAL; 12.5 MG, ORAL
     Route: 048
     Dates: start: 20070818, end: 20070921
  8. PREDNISOLONE [Suspect]
     Indication: LUPUS NEPHRITIS
     Dosage: 17.5 MG, ORAL; 15 MG, ORAL; 12.5 MG, ORAL
     Route: 048
     Dates: start: 20070922, end: 20071019
  9. PREDNISOLONE [Suspect]
     Indication: LUPUS NEPHRITIS
     Dosage: 17.5 MG, ORAL; 15 MG, ORAL; 12.5 MG, ORAL
     Route: 048
     Dates: start: 20071020, end: 20071214
  10. PREDNISOLONE [Suspect]
     Indication: LUPUS NEPHRITIS
     Dosage: 17.5 MG, ORAL; 15 MG, ORAL; 12.5 MG, ORAL
     Route: 048
     Dates: start: 20071215, end: 20080208
  11. PREDNISOLONE [Suspect]
     Indication: LUPUS NEPHRITIS
     Dosage: 17.5 MG, ORAL; 15 MG, ORAL; 12.5 MG, ORAL
     Route: 048
     Dates: start: 20080209
  12. ALFAROL (ALFACALCIDOL) [Concomitant]
  13. PRAVASTATIN [Concomitant]
  14. KEISHIBUKURYOUGAN (HERBAL EXTRACT NOS) [Concomitant]
  15. PERSANTIN [Concomitant]
  16. LAC B (LACTOBACILLUS BIFIDUS, LYOPHILIZED) FINE GRANULE [Concomitant]
  17. TOMIRON (CEFTERAM PIVOXIL) [Concomitant]
  18. KEISHITOU (HERBAL EXTRACT NOS) [Concomitant]
  19. MAOUTOU (HERBAL EXTRACT NOS) [Concomitant]
  20. ANAVAN [Concomitant]
  21. ACTONEL [Concomitant]
  22. TOKISYAKUYAKUSAN (HERBAL EXTRACT NOS) [Concomitant]

REACTIONS (5)
  - CYSTITIS [None]
  - DIARRHOEA [None]
  - OSTEONECROSIS [None]
  - RHINITIS [None]
  - UPPER RESPIRATORY TRACT INFLAMMATION [None]
